FAERS Safety Report 23827568 (Version 1)
Quarter: 2024Q2

REPORT INFORMATION
  Report Type: Spontaneous
  Country: US (occurrence: None)
  Receive Date: 20240506
  Receipt Date: 20240506
  Transmission Date: 20240716
  Serious: Yes (Life-Threatening, Other)
  Sender: FDA-Public Use
  Company Number: None

PATIENT
  Age: 38 Year
  Sex: Female
  Weight: 87.75 kg

DRUGS (13)
  1. ZEPBOUND [Suspect]
     Active Substance: TIRZEPATIDE
     Indication: Weight decreased
     Dosage: OTHER QUANTITY : 1 INJECTION(S);?OTHER FREQUENCY : 1 INJECTION/WEEK;?
     Route: 030
     Dates: start: 20240115, end: 20240325
  2. VENLAFAXINE [Concomitant]
     Active Substance: VENLAFAXINE HYDROCHLORIDE
  3. BUSPAR [Concomitant]
     Active Substance: BUSPIRONE HYDROCHLORIDE
  4. CLONAZEPAM [Concomitant]
     Active Substance: CLONAZEPAM
  5. GABAPENTIN [Concomitant]
     Active Substance: GABAPENTIN
  6. TRAZODONE [Concomitant]
     Active Substance: TRAZODONE HYDROCHLORIDE
  7. METOPROLOL [Concomitant]
     Active Substance: METOPROLOL
  8. LOSARTAN [Concomitant]
     Active Substance: LOSARTAN
  9. DEPO-PROVERA [Concomitant]
     Active Substance: MEDROXYPROGESTERONE ACETATE
  10. DISULFIRAM [Concomitant]
     Active Substance: DISULFIRAM
  11. PANTOPRAZOLE [Concomitant]
     Active Substance: PANTOPRAZOLE
  12. VITAMIN D [Concomitant]
     Active Substance: VITAMIN D NOS
  13. CALCIUM [Concomitant]
     Active Substance: CALCIUM

REACTIONS (16)
  - Depression [None]
  - Anxiety [None]
  - Anhedonia [None]
  - Condition aggravated [None]
  - Quality of life decreased [None]
  - Impaired work ability [None]
  - Suicidal ideation [None]
  - Therapy cessation [None]
  - Asthenia [None]
  - Feeling abnormal [None]
  - Dizziness [None]
  - Memory impairment [None]
  - Cognitive disorder [None]
  - Illness [None]
  - Movement disorder [None]
  - Malnutrition [None]

NARRATIVE: CASE EVENT DATE: 20240321
